FAERS Safety Report 8971539 (Version 1)
Quarter: 2012Q4

REPORT INFORMATION
  Report Type: 
  Country: US (occurrence: US)
  Receive Date: 20121217
  Receipt Date: 20121217
  Transmission Date: 20130627
  Serious: Yes (Hospitalization, Other)
  Sender: FDA-Public Use
  Company Number: US-ELI_LILLY_AND_COMPANY-US201212002507

PATIENT
  Age: 53 None
  Sex: Female
  Weight: 107.94 kg

DRUGS (11)
  1. BYETTA [Suspect]
     Indication: TYPE 2 DIABETES MELLITUS
     Dosage: 5 ug, bid
     Route: 058
     Dates: start: 200911
  2. BYETTA [Suspect]
     Dosage: 10 ug, bid
     Route: 058
  3. SYNTHROID [Concomitant]
     Indication: HYPOPARATHYROIDISM
     Dosage: UNK
  4. CALCIUM [Concomitant]
     Indication: HYPOPARATHYROIDISM
     Dosage: 500 mg, every 6 hrs
     Route: 048
  5. CALCITROL [Concomitant]
     Indication: HYPOPARATHYROIDISM
     Dosage: 25 ug, tid
     Route: 048
  6. OMEPRAZOLE [Concomitant]
     Indication: GASTROINTESTINAL DISORDER
     Dosage: UNK
  7. LEXAPRO [Concomitant]
     Indication: AGORAPHOBIA
     Dosage: 30 mg, bid
     Route: 048
  8. LIPITOR [Concomitant]
     Indication: CARDIAC DISORDER
  9. SLO-MAG [Concomitant]
     Indication: HYPOPARATHYROIDISM
     Dosage: 64 mg, qd
     Route: 048
  10. INSULIN [Concomitant]
     Indication: BLOOD GLUCOSE DECREASED
     Route: 058
  11. AMBIEN [Concomitant]

REACTIONS (12)
  - Arterial spasm [Recovered/Resolved]
  - Vasculitis [Recovered/Resolved]
  - Dehydration [Recovered/Resolved]
  - Hypersensitivity [Recovered/Resolved]
  - Headache [Recovered/Resolved]
  - Dyspnoea [Recovered/Resolved]
  - Migraine [Recovered/Resolved]
  - Blood glucose increased [Recovered/Resolved]
  - Hypophagia [Recovered/Resolved]
  - Vomiting [Recovered/Resolved]
  - Asthenia [Recovered/Resolved]
  - Off label use [Recovered/Resolved]
